FAERS Safety Report 15373399 (Version 1)
Quarter: 2018Q3

REPORT INFORMATION
  Report Type: Spontaneous
  Country: US (occurrence: US)
  Receive Date: 20180912
  Receipt Date: 20180912
  Transmission Date: 20181010
  Serious: No
  Sender: FDA-Public Use
  Company Number: US-HORIZON-DUE-0475-2018

PATIENT
  Sex: Male

DRUGS (3)
  1. DUEXIS [Suspect]
     Active Substance: FAMOTIDINE\IBUPROFEN
     Indication: PRODUCT USED FOR UNKNOWN INDICATION
  2. OXYGEN. [Concomitant]
     Active Substance: OXYGEN
  3. MS CONTIN [Concomitant]
     Active Substance: MORPHINE SULFATE

REACTIONS (1)
  - Arthropathy [Unknown]
